FAERS Safety Report 8766443 (Version 1)
Quarter: 2012Q4

REPORT INFORMATION
  Report Type: Report from Study
  Country: US (occurrence: US)
  Receive Date: 20120904
  Receipt Date: 20120904
  Transmission Date: 20130627
  Serious: Yes (Hospitalization, Other)
  Sender: FDA-Public Use
  Company Number: US-ASTRAZENECA-2012SE26459

PATIENT
  Age: 27555 Day
  Sex: Female

DRUGS (12)
  1. AZD6140 [Suspect]
     Indication: CORONARY ARTERY DISEASE
     Route: 048
     Dates: start: 20120106
  2. LOSARTAN [Concomitant]
     Indication: HYPERTENSION
     Route: 048
     Dates: start: 20120413
  3. SIMVASTATIN [Concomitant]
     Indication: HYPERCHOLESTEROLAEMIA
     Route: 048
  4. METFORMIN [Concomitant]
     Indication: TYPE 2 DIABETES MELLITUS
     Route: 048
  5. POTASSIUM [Concomitant]
     Indication: FLUID RETENTION
     Route: 048
  6. DIOVAN [Concomitant]
     Indication: HYPERTENSION
     Route: 048
     Dates: end: 20120413
  7. MECLIZINE [Concomitant]
     Indication: DIZZINESS
     Route: 048
  8. GLIMIPERIDE [Concomitant]
     Indication: TYPE 2 DIABETES MELLITUS
     Route: 048
     Dates: end: 20120420
  9. FUROSEMIDE [Concomitant]
     Indication: FLUID RETENTION
     Route: 048
  10. HYZAAR [Concomitant]
     Indication: HYPERTENSION
     Route: 048
  11. ASA [Concomitant]
     Route: 048
  12. ADVAIR [Concomitant]
     Indication: DYSPNOEA
     Route: 055
     Dates: start: 20120405

REACTIONS (1)
  - Iron deficiency anaemia [Recovered/Resolved]
